FAERS Safety Report 21232439 (Version 1)
Quarter: 2022Q3

REPORT INFORMATION
  Report Type: Spontaneous
  Country: US (occurrence: None)
  Receive Date: 20220818
  Receipt Date: 20220818
  Transmission Date: 20221026
  Serious: No
  Sender: FDA-Public Use
  Company Number: None

PATIENT
  Sex: Female
  Weight: 97.07 kg

DRUGS (11)
  1. IBRANCE [Suspect]
     Active Substance: PALBOCICLIB
     Indication: Breast cancer female
     Dosage: FREQUENCY : DAILY;?
     Route: 048
     Dates: start: 202206
  2. CALCIUM CARBONATE-VITAMIN D3 [Concomitant]
  3. DEXAMETHASONE [Concomitant]
     Active Substance: DEXAMETHASONE
  4. DIPHENHYDRAMINE [Concomitant]
  5. FASLODEX [Suspect]
     Active Substance: FULVESTRANT
  6. ONDANSETRON [Concomitant]
  7. PANTOPRAZOLE [Concomitant]
  8. PREDNISONE [Concomitant]
  9. PROCHLORPERAZINE [Concomitant]
  10. TRIAMCINOLONE ACETONIDE EXTERNAL CREAM [Concomitant]
  11. XGEVA [Concomitant]

REACTIONS (1)
  - White blood cell count decreased [None]
